FAERS Safety Report 7433693-5 (Version None)
Quarter: 2011Q2

REPORT INFORMATION
  Report Type: 
  Country: None (occurrence: None)
  Receive Date: 20110422
  Receipt Date: 20110408
  Transmission Date: 20111010
  Serious: Yes (Hospitalization)
  Sender: FDA-Public Use
  Company Number: GB-CELGENEUS-167-21880-11040917

PATIENT
  Age: 81 Year
  Sex: Male
  Weight: 75 kg

DRUGS (8)
  1. ALLOPURINOL [Concomitant]
     Route: 065
  2. WARFARIN SODIUM [Concomitant]
     Indication: ATRIAL FIBRILLATION
     Route: 065
  3. OMEPRAZOLE [Concomitant]
     Route: 065
  4. BISOPROLOL [Concomitant]
     Indication: ATRIAL FIBRILLATION
     Route: 065
  5. DEXAMETHASONE [Concomitant]
     Route: 065
  6. REVLIMID [Suspect]
     Route: 048
     Dates: start: 20101006, end: 20101118
  7. EZETIMIBE [Concomitant]
     Route: 065
  8. SODIUM CLODRONATE [Concomitant]
     Route: 065

REACTIONS (2)
  - URINARY RETENTION [None]
  - ACUTE MYOCARDIAL INFARCTION [None]
